FAERS Safety Report 15419988 (Version 5)
Quarter: 2018Q4

REPORT INFORMATION
  Report Type: Spontaneous
  Country: US (occurrence: US)
  Receive Date: 20180924
  Receipt Date: 20181121
  Transmission Date: 20190204
  Serious: Yes (Hospitalization, Other)
  Sender: FDA-Public Use
  Company Number: US-IMPAX LABORATORIES, INC-2018-IPXL-03052

PATIENT
  Age: 85 Year
  Sex: Male
  Weight: 75 kg

DRUGS (5)
  1. RYTARY [Suspect]
     Active Substance: CARBIDOPA\LEVODOPA
     Indication: PARKINSON^S DISEASE
     Dosage: 48.75/195 MG, THREE CAPSULES IN MORNING, AND THREE CAPSULES AT EVENING
     Route: 048
     Dates: start: 2016, end: 2018
  2. RYTARY [Suspect]
     Active Substance: CARBIDOPA\LEVODOPA
     Dosage: 36.25/145 MG, THREE CAPSULES. THREE TIMES DAILY
     Route: 048
     Dates: start: 2018
  3. RYTARY [Suspect]
     Active Substance: CARBIDOPA\LEVODOPA
     Dosage: 23.75/95 MG, UNK
     Route: 048
     Dates: start: 2018, end: 2018
  4. RYTARY [Suspect]
     Active Substance: CARBIDOPA\LEVODOPA
     Dosage: 36.25/145 MG, THREE CAPSULES IN THE MORNING, THREE CAPSULE AT THE NIGHT
     Route: 048
     Dates: start: 2018, end: 2018
  5. RYTARY [Suspect]
     Active Substance: CARBIDOPA\LEVODOPA
     Dosage: 23.75/95 MG, THREE CAPSULE THREE TIMES A DAY
     Route: 048
     Dates: start: 2018

REACTIONS (9)
  - Traumatic intracranial haemorrhage [Recovered/Resolved]
  - Abdominal discomfort [Not Recovered/Not Resolved]
  - Fall [Recovered/Resolved]
  - Headache [Not Recovered/Not Resolved]
  - Glaucoma [Not Recovered/Not Resolved]
  - Dysgraphia [Unknown]
  - Dizziness [Not Recovered/Not Resolved]
  - Tremor [Recovering/Resolving]
  - Eye injury [Recovered/Resolved]

NARRATIVE: CASE EVENT DATE: 2016
